FAERS Safety Report 11338744 (Version 1)
Quarter: 2015Q3

REPORT INFORMATION
  Report Type: Spontaneous
  Country: US (occurrence: US)
  Receive Date: 20150803
  Receipt Date: 20150803
  Transmission Date: 20151125
  Serious: No
  Sender: FDA-Public Use
  Company Number: US-ELI_LILLY_AND_COMPANY-US200806003316

PATIENT
  Sex: Male
  Weight: 34.92 kg

DRUGS (1)
  1. STRATTERA [Suspect]
     Active Substance: ATOMOXETINE HYDROCHLORIDE
     Indication: ATTENTION DEFICIT/HYPERACTIVITY DISORDER
     Dosage: 40 MG, UNK

REACTIONS (9)
  - Speech disorder [Unknown]
  - Mood altered [Unknown]
  - Negativism [Unknown]
  - Decreased appetite [Unknown]
  - Adverse reaction [Unknown]
  - Abnormal behaviour [Unknown]
  - Anxiety [Unknown]
  - Screaming [Unknown]
  - Aggression [Unknown]
